FAERS Safety Report 9680934 (Version 1)
Quarter: 2013Q4

REPORT INFORMATION
  Report Type: Report from Study
  Country: CA (occurrence: CA)
  Receive Date: 20131111
  Receipt Date: 20131111
  Transmission Date: 20140711
  Serious: Yes (Other)
  Sender: FDA-Public Use
  Company Number: CA-JNJFOC-20131103147

PATIENT
  Age: 49 Year
  Sex: Female

DRUGS (4)
  1. SIMPONI [Suspect]
     Indication: PSORIATIC ARTHROPATHY
     Route: 058
     Dates: start: 20120814
  2. METHOTREXATE [Concomitant]
     Route: 048
  3. ARAVA [Concomitant]
     Route: 048
  4. CYMBALTA [Concomitant]
     Route: 065

REACTIONS (1)
  - Diabetes mellitus [Unknown]
